FAERS Safety Report 10414304 (Version 1)
Quarter: 2014Q3

REPORT INFORMATION
  Report Type: Spontaneous
  Country: JP (occurrence: JP)
  Receive Date: 20140828
  Receipt Date: 20140828
  Transmission Date: 20150326
  Serious: Yes (Other)
  Sender: FDA-Public Use
  Company Number: PHHY2014JP104968

PATIENT
  Age: 65 Year
  Sex: Male

DRUGS (6)
  1. ENTACAPONE. [Suspect]
     Active Substance: ENTACAPONE
     Dosage: 800 MG, UNK
  2. ROPINIROLE. [Suspect]
     Active Substance: ROPINIROLE
     Dosage: 5 MG, UNK
  3. DROXIDOPA [Suspect]
     Active Substance: DROXIDOPA
     Dosage: 100 MG, UNK
  4. LEVODOPA [Concomitant]
     Active Substance: LEVODOPA
     Dosage: 400 MG, UNK
  5. CABERGOLINE. [Suspect]
     Active Substance: CABERGOLINE
     Dosage: 1 MG, UNK
  6. ZONISAMIDE. [Suspect]
     Active Substance: ZONISAMIDE
     Dosage: 25 MG, UNK

REACTIONS (1)
  - Jealous delusion [Recovered/Resolved]
